FAERS Safety Report 13046085 (Version 1)
Quarter: 2016Q4

REPORT INFORMATION
  Report Type: Spontaneous
  Country: US (occurrence: US)
  Receive Date: 20161220
  Receipt Date: 20161220
  Transmission Date: 20170207
  Serious: No
  Sender: FDA-Public Use
  Company Number: US-DRREDDYS-USA/USA/16/0081319

PATIENT
  Age: 37 Year
  Sex: Female

DRUGS (1)
  1. OLANZAPINE ODT 10 MG [Suspect]
     Active Substance: OLANZAPINE
     Indication: MIGRAINE
     Route: 048
     Dates: start: 20160707

REACTIONS (2)
  - Product use issue [Unknown]
  - Product solubility abnormal [Unknown]
